FAERS Safety Report 12265019 (Version 1)
Quarter: 2016Q2

REPORT INFORMATION
  Report Type: Spontaneous
  Country: IR (occurrence: IR)
  Receive Date: 20160413
  Receipt Date: 20160413
  Transmission Date: 20160815
  Serious: Yes (Other)
  Sender: FDA-Public Use
  Company Number: IR-ACTAVIS-2016-07686

PATIENT
  Age: 34 Year
  Sex: Male

DRUGS (1)
  1. SPIRONOLACTONE (UNKNOWN) [Suspect]
     Active Substance: SPIRONOLACTONE
     Indication: 11-BETA-HYDROXYLASE DEFICIENCY
     Dosage: 25 MG, BID
     Route: 065

REACTIONS (2)
  - Azoospermia [Not Recovered/Not Resolved]
  - Secondary sexual characteristics absence [Not Recovered/Not Resolved]
